FAERS Safety Report 9747641 (Version 1)
Quarter: 2013Q4

REPORT INFORMATION
  Report Type: Spontaneous
  Country: US (occurrence: None)
  Receive Date: 20131205
  Receipt Date: 20131205
  Transmission Date: 20140711
  Serious: Yes (Other)
  Sender: FDA-Public Use
  Company Number: DSA_59531_2012

PATIENT
  Age: 11 Year
  Sex: Male

DRUGS (1)
  1. XENAZINE [Suspect]
     Indication: DYSTONIA
     Dosage: 2 DOSAGE FORMS, 4 IN 1 D, ORAL
     Route: 048
     Dates: start: 20130220

REACTIONS (5)
  - Malaise [None]
  - Pyrexia [None]
  - Joint stiffness [None]
  - Trismus [None]
  - Dyspnoea [None]
